FAERS Safety Report 12535838 (Version 1)
Quarter: 2016Q3

REPORT INFORMATION
  Report Type: Spontaneous
  Country: GB (occurrence: GB)
  Receive Date: 20160707
  Receipt Date: 20160707
  Transmission Date: 20161109
  Serious: Yes (Life-Threatening)
  Sender: FDA-Public Use
  Company Number: GB-WATSON-2016-14824

PATIENT
  Age: 17 Year
  Sex: Male
  Weight: 101 kg

DRUGS (5)
  1. SALBUTAMOL [Concomitant]
     Active Substance: ALBUTEROL
     Indication: PRODUCT USED FOR UNKNOWN INDICATION
     Dosage: UNK, UNKNOWN
     Route: 065
  2. ATRACURIUM (UNKNOWN) [Suspect]
     Active Substance: ATRACURIUM
     Indication: HYPOTONIA
     Dosage: 50 MG, UNKNOWN
     Route: 042
     Dates: start: 20160614
  3. FENTANYL (UNKNOWN) [Suspect]
     Active Substance: FENTANYL
     Indication: ANALGESIC THERAPY
     Dosage: 100 ?G, UNKNOWN
     Route: 042
     Dates: start: 20160614
  4. PROPOFOL. [Suspect]
     Active Substance: PROPOFOL
     Indication: INDUCTION OF ANAESTHESIA
     Dosage: 300 MG, UNKNOWN
     Route: 042
     Dates: start: 20160614
  5. CETIRIZINE [Concomitant]
     Active Substance: CETIRIZINE HYDROCHLORIDE
     Indication: PRODUCT USED FOR UNKNOWN INDICATION
     Dosage: UNK, UNKNOWN
     Route: 065

REACTIONS (2)
  - Bronchospasm [Recovering/Resolving]
  - Rash generalised [Recovering/Resolving]

NARRATIVE: CASE EVENT DATE: 20160614
